FAERS Safety Report 10486286 (Version 2)
Quarter: 2014Q4

REPORT INFORMATION
  Report Type: Spontaneous
  Country: JP (occurrence: JP)
  Receive Date: 20141001
  Receipt Date: 20141007
  Transmission Date: 20150528
  Serious: Yes (Hospitalization)
  Sender: FDA-Public Use
  Company Number: PHJP2014JP001167

PATIENT
  Age: 79 Year
  Sex: Male

DRUGS (1)
  1. TEGRETOL [Suspect]
     Active Substance: CARBAMAZEPINE
     Route: 048
     Dates: start: 201309

REACTIONS (14)
  - Granuloma [Unknown]
  - Drug reaction with eosinophilia and systemic symptoms [Recovering/Resolving]
  - Erythema of eyelid [Recovering/Resolving]
  - Erythema [Recovering/Resolving]
  - Generalised oedema [Unknown]
  - Lymphadenopathy [Unknown]
  - Human herpes virus 6 serology positive [Unknown]
  - Eosinophilia [Unknown]
  - Renal impairment [Unknown]
  - Oedema [Unknown]
  - Sclerema [Recovering/Resolving]
  - Sarcoidosis [Unknown]
  - Rash [Recovering/Resolving]
  - Pigmentation disorder [Recovering/Resolving]

NARRATIVE: CASE EVENT DATE: 201402
